FAERS Safety Report 4384618-0 (Version None)
Quarter: 2004Q2

REPORT INFORMATION
  Report Type: 
  Country: None (occurrence: None)
  Receive Date: 20040625
  Receipt Date: 20030710
  Transmission Date: 20050107
  Serious: No
  Sender: FDA-Public Use
  Company Number: US-BRISTOL-MYERS SQUIBB COMPANY-12325957

PATIENT
  Age: 51 Year
  Sex: Female

DRUGS (1)
  1. CARBIDOPA + LEVODOPA CR TABS 25/100MG [Suspect]
     Indication: PARKINSON'S DISEASE
     Dosage: 25/100MG TABLET ONCE DAILY
     Route: 048

REACTIONS (3)
  - BALANCE DISORDER [None]
  - DRUG INEFFECTIVE [None]
  - MOVEMENT DISORDER [None]
